FAERS Safety Report 7071567-2 (Version None)
Quarter: 2010Q4

REPORT INFORMATION
  Report Type: 
  Country: None (occurrence: None)
  Receive Date: 20101029
  Receipt Date: 20090923
  Transmission Date: 20110411
  Serious: No
  Sender: FDA-Public Use
  Company Number: A0808692A

PATIENT
  Age: 77 Year
  Sex: Female

DRUGS (8)
  1. ADVAIR DISKUS 100/50 [Suspect]
     Indication: ASTHMA
     Dosage: 1PUFF TWICE PER DAY
     Route: 055
     Dates: start: 20010101
  2. XALATAN [Concomitant]
  3. ZYRTEC [Concomitant]
  4. XOPENEX [Concomitant]
  5. ACETAMINOPHEN [Concomitant]
  6. MULTI-VITAMIN [Concomitant]
  7. ZADITOR [Concomitant]
  8. PRILOSEC [Concomitant]

REACTIONS (8)
  - EYE PRURITUS [None]
  - GINGIVAL PAIN [None]
  - HEADACHE [None]
  - INTRAOCULAR PRESSURE INCREASED [None]
  - OCULAR HYPERAEMIA [None]
  - ORAL PAIN [None]
  - ORAL PRURITUS [None]
  - OROPHARYNGEAL PAIN [None]
